FAERS Safety Report 17485731 (Version 1)
Quarter: 2020Q1

REPORT INFORMATION
  Report Type: Spontaneous
  Country: FR (occurrence: FR)
  Receive Date: 20200303
  Receipt Date: 20200303
  Transmission Date: 20200409
  Serious: Yes (Other)
  Sender: FDA-Public Use
  Company Number: FR-US-PROVELL PHARMACEUTICALS LLC-E2B_90072567

PATIENT
  Age: 54 Year
  Sex: Female
  Weight: 100 kg

DRUGS (5)
  1. LEVOTHYROX NF [Suspect]
     Active Substance: LEVOTHYROXINE SODIUM
     Indication: AUTOIMMUNE THYROIDITIS
     Dosage: ONE TABLET OF LEVOTHYROX 100 UG AND ONE FOURTH OF LEVOTHYROX 25 UG.
     Dates: start: 20170823, end: 20170928
  2. OGAST [Concomitant]
     Active Substance: LANSOPRAZOLE
     Indication: GASTROOESOPHAGEAL REFLUX DISEASE
     Dosage: 30 (UNSPECIFIED UNITS)
  3. PARACETAMOL [Concomitant]
     Active Substance: ACETAMINOPHEN
     Indication: PAIN
     Dosage: 500 (UNSPECIFIED UNITS)
  4. LEVOTHYROX NF [Suspect]
     Active Substance: LEVOTHYROXINE SODIUM
     Indication: HYPOTHYROIDISM
     Dosage: ONE TABLET OF LEVOTHYROX 100 UG AND ONE FOURTH OF LEVOTHYROX 25 UG.
     Dates: start: 20170823, end: 20170928
  5. FENOFIBRATE. [Concomitant]
     Active Substance: FENOFIBRATE
     Indication: PRODUCT USED FOR UNKNOWN INDICATION

REACTIONS (4)
  - Muscle spasms [Recovered/Resolved]
  - Nausea [Recovered/Resolved]
  - Fall [Recovered/Resolved]
  - Alopecia [Recovered/Resolved]

NARRATIVE: CASE EVENT DATE: 201709
